FAERS Safety Report 20457911 (Version 1)
Quarter: 2022Q1

REPORT INFORMATION
  Report Type: Report from Study
  Country: CO (occurrence: CO)
  Receive Date: 20220210
  Receipt Date: 20220210
  Transmission Date: 20220423
  Serious: Yes (Other)
  Sender: FDA-Public Use
  Company Number: CO-ABBVIE-22K-036-4273194-00

PATIENT
  Age: 71 Year
  Sex: Male
  Weight: 108 kg

DRUGS (1)
  1. HUMIRA [Suspect]
     Active Substance: ADALIMUMAB
     Indication: Psoriasis
     Route: 058
     Dates: start: 20190927, end: 20210702

REACTIONS (1)
  - Apnoea [Not Recovered/Not Resolved]

NARRATIVE: CASE EVENT DATE: 20211201
